FAERS Safety Report 5537209-X (Version None)
Quarter: 2007Q4

REPORT INFORMATION
  Report Type: 
  Country: None (occurrence: None)
  Receive Date: 20071120
  Receipt Date: 20070821
  Transmission Date: 20080405
  Serious: No
  Sender: FDA-Public Use
  Company Number: WAES 0708USA03949

PATIENT
  Age: 46 Year
  Sex: Female

DRUGS (5)
  1. JANUVIA [Suspect]
     Indication: DIABETES MELLITUS
     Dosage: 100 MG/DAILY/PO
     Route: 048
     Dates: start: 20070803, end: 20070821
  2. MOTRIN [Concomitant]
  3. PREVACID [Concomitant]
  4. FEXOFENADINE HYDORCHLORIDE [Concomitant]
  5. GLIPIZIDE [Concomitant]

REACTIONS (3)
  - CHEST PAIN [None]
  - FLATULENCE [None]
  - NAUSEA [None]
